FAERS Safety Report 6667352-3 (Version None)
Quarter: 2010Q1

REPORT INFORMATION
  Report Type: 
  Country: None (occurrence: None)
  Receive Date: 20100318
  Receipt Date: 20100302
  Transmission Date: 20100710
  Serious: Yes (Hospitalization)
  Sender: FDA-Public Use
  Company Number: OMX-2010-00012

PATIENT
  Sex: Female

DRUGS (3)
  1. EVITHROM [Suspect]
  2. EVITHROM [Suspect]
  3. SURGIFLOW [Suspect]

REACTIONS (4)
  - CARDIO-RESPIRATORY ARREST [None]
  - GENERAL PHYSICAL CONDITION ABNORMAL [None]
  - HYPOTENSION [None]
  - UNEVALUABLE EVENT [None]
